FAERS Safety Report 11158640 (Version 1)
Quarter: 2015Q2

REPORT INFORMATION
  Report Type: Spontaneous
  Country: US (occurrence: None)
  Receive Date: 20150602
  Receipt Date: 20150602
  Transmission Date: 20150821
  Serious: Yes (Hospitalization)
  Sender: FDA-Public Use
  Company Number: None

PATIENT
  Age: 79 Year
  Sex: Male
  Weight: 84.5 kg

DRUGS (2)
  1. WARFARIN [Suspect]
     Active Substance: WARFARIN
     Indication: ATRIAL FIBRILLATION
     Route: 048
     Dates: start: 20140904, end: 20150225
  2. PREDNISONE. [Suspect]
     Active Substance: PREDNISONE
     Indication: UPPER RESPIRATORY TRACT INFECTION
     Dosage: MG
     Route: 048
     Dates: start: 20140211, end: 20150323

REACTIONS (1)
  - Gastrointestinal haemorrhage [None]

NARRATIVE: CASE EVENT DATE: 20150225
